FAERS Safety Report 8298375-9 (Version None)
Quarter: 2012Q2

REPORT INFORMATION
  Report Type: 
  Country: None (occurrence: None)
  Receive Date: 20120419
  Receipt Date: 20120417
  Transmission Date: 20120825
  Serious: Yes (Other)
  Sender: FDA-Public Use
  Company Number: BR-SANOFI-AVENTIS-2012SA020313

PATIENT
  Age: 27 Year
  Sex: Female
  Weight: 63 kg

DRUGS (5)
  1. HUMALOG [Concomitant]
     Dosage: DOSE: ACCORDING TO GLYCEMIA
     Route: 058
  2. PANTOPRAZOLE [Concomitant]
     Dosage: STRENGTH: 40 MG
     Route: 048
     Dates: start: 20030101
  3. YASMIN [Concomitant]
     Indication: CONTRACEPTION
     Route: 048
     Dates: start: 20040101
  4. LANTUS [Suspect]
     Route: 058
     Dates: start: 20040521
  5. SOLOSTAR [Suspect]
     Indication: DEVICE THERAPY
     Dates: start: 20040521

REACTIONS (4)
  - BLISTER [None]
  - HYPERSENSITIVITY [None]
  - HAEMOLYTIC ANAEMIA [None]
  - DERMATITIS HERPETIFORMIS [None]
